FAERS Safety Report 7120150-9 (Version None)
Quarter: 2010Q4

REPORT INFORMATION
  Report Type: 
  Country: None (occurrence: None)
  Receive Date: 20101123
  Receipt Date: 20101101
  Transmission Date: 20110411
  Serious: Yes (Other)
  Sender: FDA-Public Use
  Company Number: US-AMGEN-KDL424593

PATIENT

DRUGS (11)
  1. NPLATE [Suspect]
     Indication: IDIOPATHIC THROMBOCYTOPENIC PURPURA
     Dosage: 80 A?G, UNK
     Dates: start: 20100506, end: 20101019
  2. NPLATE [Suspect]
     Dosage: 80 A?G, UNK
     Dates: start: 20100506
  3. NPLATE [Suspect]
     Dates: start: 20100501, end: 20101019
  4. DAPSONE [Concomitant]
     Dosage: UNK UNK, UNK
  5. FOLIC ACID [Concomitant]
     Dosage: UNK UNK, UNK
  6. ICAPS [Concomitant]
     Dosage: UNK UNK, UNK
  7. OMEPRAZOLE [Concomitant]
     Dosage: UNK UNK, UNK
  8. SIMVASTATIN [Concomitant]
     Dosage: UNK UNK, UNK
  9. TRAMADOL HCL [Concomitant]
     Dosage: UNK UNK, UNK
  10. ERGOCALCIFEROL [Concomitant]
     Dosage: UNK UNK, UNK
  11. CORTICOSTEROIDS [Concomitant]
     Dosage: UNK

REACTIONS (5)
  - ALOPECIA [None]
  - DEEP VEIN THROMBOSIS [None]
  - EMBOLISM ARTERIAL [None]
  - HYPOAESTHESIA [None]
  - THROMBOCYTOPENIA [None]
